FAERS Safety Report 12646333 (Version 3)
Quarter: 2016Q4

REPORT INFORMATION
  Report Type: Spontaneous
  Country: US (occurrence: US)
  Receive Date: 20160812
  Receipt Date: 20161228
  Transmission Date: 20170207
  Serious: No
  Sender: FDA-Public Use
  Company Number: US-009507513-1608USA002960

PATIENT
  Sex: Female

DRUGS (1)
  1. IMPLANON [Suspect]
     Active Substance: ETONOGESTREL
     Indication: CONTRACEPTION
     Dosage: UNK, UNKNOWN
     Route: 059
     Dates: start: 20100524

REACTIONS (4)
  - Complication associated with device [Not Recovered/Not Resolved]
  - Complication associated with device [Unknown]
  - Incorrect drug administration duration [Not Recovered/Not Resolved]
  - Difficulty removing drug implant [Unknown]

NARRATIVE: CASE EVENT DATE: 20100604
